FAERS Safety Report 5250411-X (Version None)
Quarter: 2007Q1

REPORT INFORMATION
  Report Type: 
  Country: None (occurrence: None)
  Receive Date: 20070228
  Receipt Date: 20060420
  Transmission Date: 20070707
  Serious: No
  Sender: FDA-Public Use
  Company Number: US-GLAXOSMITHKLINE-A0601176A

PATIENT
  Age: 48 Year
  Sex: Female

DRUGS (3)
  1. LAMICTAL [Suspect]
     Indication: BIPOLAR DISORDER
     Dosage: 300MG PER DAY
     Route: 048
     Dates: start: 20050523
  2. WELLBUTRIN [Concomitant]
     Dosage: 100MG TWICE PER DAY
     Route: 048
  3. KLONOPIN [Concomitant]
     Dosage: .5MG THREE TIMES PER DAY

REACTIONS (1)
  - ALOPECIA [None]
